FAERS Safety Report 6765179-5 (Version None)
Quarter: 2010Q2

REPORT INFORMATION
  Report Type: 
  Country: None (occurrence: None)
  Receive Date: 20100610
  Receipt Date: 20100610
  Transmission Date: 20101027
  Serious: No
  Sender: FDA-Public Use
  Company Number: None

PATIENT
  Sex: Female
  Weight: 19.5047 kg

DRUGS (1)
  1. VYVANSE [Suspect]
     Indication: ATTENTION DEFICIT/HYPERACTIVITY DISORDER
     Dosage: ONE DAILY PO
     Route: 048
     Dates: start: 20100504, end: 20100604

REACTIONS (3)
  - DRUG DISPENSING ERROR [None]
  - HYPOPHAGIA [None]
  - WEIGHT DECREASED [None]
